FAERS Safety Report 12514306 (Version 2)
Quarter: 2016Q3

REPORT INFORMATION
  Report Type: Spontaneous
  Country: US (occurrence: US)
  Receive Date: 20160630
  Receipt Date: 20160912
  Transmission Date: 20161109
  Serious: Yes (Hospitalization)
  Sender: FDA-Public Use
  Company Number: US-JNJFOC-20160525179

PATIENT
  Age: 71 Year
  Sex: Female

DRUGS (4)
  1. XARELTO [Suspect]
     Active Substance: RIVAROXABAN
     Indication: DEEP VEIN THROMBOSIS
     Dosage: 15-20MG
     Route: 048
     Dates: start: 20160104, end: 20160106
  2. XARELTO [Suspect]
     Active Substance: RIVAROXABAN
     Indication: PULMONARY EMBOLISM
     Dosage: 15MG, 20 MG
     Route: 048
     Dates: end: 20160111
  3. XARELTO [Suspect]
     Active Substance: RIVAROXABAN
     Indication: DEEP VEIN THROMBOSIS
     Dosage: 15MG, 20 MG
     Route: 048
     Dates: end: 20160111
  4. XARELTO [Suspect]
     Active Substance: RIVAROXABAN
     Indication: PULMONARY EMBOLISM
     Dosage: 15-20MG
     Route: 048
     Dates: start: 20160104, end: 20160106

REACTIONS (3)
  - Haematuria [Unknown]
  - Abdominal wall haematoma [Unknown]
  - Haemoptysis [Unknown]

NARRATIVE: CASE EVENT DATE: 20160107
